FAERS Safety Report 11020409 (Version 2)
Quarter: 2015Q2

REPORT INFORMATION
  Report Type: Spontaneous
  Country: US (occurrence: US)
  Receive Date: 20150413
  Receipt Date: 20150525
  Transmission Date: 20150821
  Serious: Yes (Hospitalization)
  Sender: FDA-Public Use
  Company Number: US-JNJFOC-20110308144

PATIENT
  Age: 33 Year
  Sex: Female

DRUGS (3)
  1. LEVAQUIN [Suspect]
     Active Substance: LEVOFLOXACIN
     Indication: LOCALISED INFECTION
     Route: 048
  2. VANCOMYCIN [Suspect]
     Active Substance: VANCOMYCIN
     Indication: OSTEOMYELITIS
     Route: 042
  3. LEVAQUIN [Suspect]
     Active Substance: LEVOFLOXACIN
     Indication: PRODUCT USED FOR UNKNOWN INDICATION
     Route: 042

REACTIONS (7)
  - Paranoia [Unknown]
  - Immune system disorder [Unknown]
  - Stevens-Johnson syndrome [Recovering/Resolving]
  - Anger [Unknown]
  - Self esteem decreased [Unknown]
  - Mood swings [Unknown]
  - Anxiety [Unknown]

NARRATIVE: CASE EVENT DATE: 200904
